FAERS Safety Report 7575543-2 (Version None)
Quarter: 2011Q2

REPORT INFORMATION
  Report Type: 
  Country: None (occurrence: None)
  Receive Date: 20110627
  Receipt Date: 20110617
  Transmission Date: 20111010
  Serious: Yes (Other)
  Sender: FDA-Public Use
  Company Number: US-MERCK-1006USA00434

PATIENT
  Age: 59 Year
  Sex: Female
  Weight: 70 kg

DRUGS (6)
  1. FOSAMAX [Suspect]
     Indication: BONE DENSITY DECREASED
     Dosage: ^70 MG PO ONCE/WK TUESDAY (40MG TABLETS)^
     Route: 048
     Dates: start: 20020124, end: 20070901
  2. FOSAMAX [Suspect]
     Indication: RHEUMATOID ARTHRITIS
     Dosage: ^70 MG PO ONCE/WK TUESDAY (40MG TABLETS)^
     Route: 048
     Dates: start: 20020124, end: 20070901
  3. FOSAMAX [Suspect]
     Route: 048
     Dates: start: 20000509, end: 20010701
  4. PLAQUENIL [Concomitant]
     Route: 065
     Dates: start: 19980101, end: 20060401
  5. METHOTREXATE [Concomitant]
     Indication: RHEUMATOID ARTHRITIS
     Route: 048
  6. FOSAMAX [Suspect]
     Route: 048
     Dates: start: 20000509, end: 20010701

REACTIONS (40)
  - TOOTH ABSCESS [None]
  - CONTUSION [None]
  - HYPERCALCAEMIA [None]
  - NOCTURIA [None]
  - TOOTH DISORDER [None]
  - DEPRESSION [None]
  - ABSCESS ORAL [None]
  - JOINT SWELLING [None]
  - DYSPNOEA [None]
  - OSTEOARTHRITIS [None]
  - ORAL DISORDER [None]
  - NECK PAIN [None]
  - UPPER RESPIRATORY TRACT INFECTION [None]
  - TOOTH LOSS [None]
  - ARTHROPATHY [None]
  - BLOOD PRESSURE INCREASED [None]
  - BRONCHITIS [None]
  - MICTURITION URGENCY [None]
  - WEIGHT LOSS POOR [None]
  - ASTHENIA [None]
  - ANKLE FRACTURE [None]
  - JOINT SPRAIN [None]
  - OSTEOPENIA [None]
  - MOUTH ULCERATION [None]
  - HYPERPARATHYROIDISM SECONDARY [None]
  - INSOMNIA [None]
  - DENTAL CARIES [None]
  - DIZZINESS [None]
  - DRUG ADMINISTRATION ERROR [None]
  - EDENTULOUS [None]
  - SKIN ULCER [None]
  - PARAESTHESIA ORAL [None]
  - OSTEONECROSIS OF JAW [None]
  - IMMUNE SYSTEM DISORDER [None]
  - INTERVERTEBRAL DISC DEGENERATION [None]
  - ARTHRITIS [None]
  - TONGUE ULCERATION [None]
  - SENSORY LOSS [None]
  - OEDEMA PERIPHERAL [None]
  - PAIN [None]
